FAERS Safety Report 19012272 (Version 1)
Quarter: 2021Q1

REPORT INFORMATION
  Report Type: Spontaneous
  Country: US (occurrence: US)
  Receive Date: 20210316
  Receipt Date: 20210316
  Transmission Date: 20210420
  Serious: No
  Sender: FDA-Public Use
  Company Number: None

PATIENT
  Age: 60 Year
  Sex: Female
  Weight: 113.8 kg

DRUGS (9)
  1. DIAZEPAM. [Suspect]
     Active Substance: DIAZEPAM
  2. LISINOPRIL. [Suspect]
     Active Substance: LISINOPRIL
  3. MELOXICAM. [Suspect]
     Active Substance: MELOXICAM
  4. FEMARA [Suspect]
     Active Substance: LETROZOLE
     Dates: end: 20201103
  5. OMEPRAZOLE. [Suspect]
     Active Substance: OMEPRAZOLE
  6. OXYCODONE [Suspect]
     Active Substance: OXYCODONE
  7. PROMETHAZINE [Suspect]
     Active Substance: PROMETHAZINE HYDROCHLORIDE
  8. HYDROCHLOROTHIAZIDE. [Suspect]
     Active Substance: HYDROCHLOROTHIAZIDE
  9. GABAPENTIN. [Suspect]
     Active Substance: GABAPENTIN

REACTIONS (1)
  - Hypertension [None]

NARRATIVE: CASE EVENT DATE: 20201104
